FAERS Safety Report 8327092-1 (Version None)
Quarter: 2012Q2

REPORT INFORMATION
  Report Type: 
  Country: None (occurrence: None)
  Receive Date: 20120501
  Receipt Date: 20120423
  Transmission Date: 20120825
  Serious: Yes (Death)
  Sender: FDA-Public Use
  Company Number: JP-MERCK-1204USA04280

PATIENT
  Age: 86 Year
  Sex: Male

DRUGS (7)
  1. UNIPHYL LA [Concomitant]
     Dosage: DAILY DOSAGE UNKNOWN
     Route: 048
  2. MIRTAZAPINE [Concomitant]
     Dosage: DAILY DOSAGE UNKNOWN
     Route: 048
  3. JANUVIA [Suspect]
     Indication: DIABETES MELLITUS
     Route: 048
     Dates: start: 20101101
  4. PRAVASTATIN SODIUM [Concomitant]
     Indication: DYSLIPIDAEMIA
     Route: 048
  5. CANDESARTAN CILEXETIL [Concomitant]
     Indication: HYPERTENSION
     Dosage: DAILY DOSAGE UNKNOWN
     Route: 048
  6. MUCOTRON [Concomitant]
     Dosage: DAILY DOSAGE UNKNOWN
     Route: 048
  7. MUCOBULIN [Concomitant]
     Route: 048

REACTIONS (2)
  - VOLVULUS OF SMALL BOWEL [None]
  - HYPOGLYCAEMIA [None]
